FAERS Safety Report 5573537-X (Version None)
Quarter: 2007Q4

REPORT INFORMATION
  Report Type: 
  Country: None (occurrence: None)
  Receive Date: 20071226
  Receipt Date: 20071217
  Transmission Date: 20080405
  Serious: Yes (Other)
  Sender: FDA-Public Use
  Company Number: US-JNJFOC-20071100330

PATIENT
  Sex: Female
  Weight: 73.94 kg

DRUGS (7)
  1. REMICADE [Suspect]
     Route: 042
  2. REMICADE [Suspect]
     Route: 042
  3. REMICADE [Suspect]
     Route: 042
  4. REMICADE [Suspect]
     Indication: PSORIATIC ARTHROPATHY
     Route: 042
  5. PREDNISONE [Concomitant]
  6. METHOTREXATE [Concomitant]
  7. LEFLUNOMIDE [Concomitant]

REACTIONS (4)
  - BACK PAIN [None]
  - DRUG INTOLERANCE [None]
  - HYPOKINESIA [None]
  - PAIN IN EXTREMITY [None]
